FAERS Safety Report 22537538 (Version 2)
Quarter: 2024Q4

REPORT INFORMATION
  Report Type: Spontaneous
  Country: US (occurrence: US)
  Receive Date: 20230608
  Receipt Date: 20241004
  Transmission Date: 20250115
  Serious: No
  Sender: BIOMARIN
  Company Number: US-SA-SAC20220929000779

PATIENT

DRUGS (2)
  1. ALDURAZYME [Suspect]
     Active Substance: LARONIDASE
     Indication: Mucopolysaccharidosis I
     Dosage: 46.4MG EVERY WEEK
     Route: 042
     Dates: start: 20220206, end: 202209
  2. ALDURAZYME [Suspect]
     Active Substance: LARONIDASE
     Dosage: 46.4 MG, EVERY WEEK
     Route: 042

REACTIONS (1)
  - Pyrexia [Recovered/Resolved]

NARRATIVE: CASE EVENT DATE: 20230531
